FAERS Safety Report 11398984 (Version 1)
Quarter: 2015Q3

REPORT INFORMATION
  Report Type: Spontaneous
  Country: US (occurrence: US)
  Receive Date: 20150820
  Receipt Date: 20150820
  Transmission Date: 20151125
  Serious: No
  Sender: FDA-Public Use
  Company Number: US-009507513-1508USA004965

PATIENT
  Age: 68 Year
  Sex: Female

DRUGS (4)
  1. BELSOMRA [Suspect]
     Active Substance: SUVOREXANT
     Indication: INSOMNIA
     Dosage: 20 MG, QD
     Route: 048
     Dates: start: 20150728, end: 20150728
  2. BELSOMRA [Suspect]
     Active Substance: SUVOREXANT
     Dosage: 40 MG, QD
     Route: 048
     Dates: start: 20150729, end: 20150729
  3. SEROQUEL [Concomitant]
     Active Substance: QUETIAPINE FUMARATE
     Dosage: 50 MG, BID
  4. BELSOMRA [Suspect]
     Active Substance: SUVOREXANT
     Dosage: 60 MG, QD
     Route: 048
     Dates: start: 20150730, end: 20150730

REACTIONS (3)
  - Muscular weakness [Recovering/Resolving]
  - Drug ineffective [Unknown]
  - Intentional overdose [Unknown]

NARRATIVE: CASE EVENT DATE: 201507
